FAERS Safety Report 7492204-9 (Version None)
Quarter: 2011Q2

REPORT INFORMATION
  Report Type: 
  Country: None (occurrence: None)
  Receive Date: 20110519
  Receipt Date: 20101108
  Transmission Date: 20111010
  Serious: No
  Sender: FDA-Public Use
  Company Number: US-NOVEN-ALL1-2010-05218

PATIENT

DRUGS (1)
  1. DAYTRANA [Suspect]
     Dosage: 1/2 OF A 15 MG PATCHUNK MG, 1X/DAY:QD
     Route: 062

REACTIONS (2)
  - DRUG DIVERSION [None]
  - WRONG TECHNIQUE IN DRUG USAGE PROCESS [None]
